FAERS Safety Report 8722716 (Version 1)
Quarter: 2012Q4

REPORT INFORMATION
  Report Type: 
  Country: FR (occurrence: FR)
  Receive Date: 20120828
  Receipt Date: 20120828
  Transmission Date: 20130627
  Serious: Yes (Life-Threatening, Other)
  Sender: FDA-Public Use
  Company Number: FR-009507513-1208FRA004830

PATIENT

DRUGS (16)
  1. ISENTRESS [Suspect]
     Indication: HIV INFECTION
     Dosage: UNK
     Route: 048
     Dates: start: 201205
  2. ACUPAN [Suspect]
     Dosage: 120 mg, qd
     Route: 042
     Dates: start: 20120716, end: 20120727
  3. AMIKACINE MYLAN [Suspect]
     Dosage: 900 mg, qd
     Route: 042
     Dates: start: 20120711
  4. ANSATIPINE [Suspect]
     Dosage: UNK
     Route: 042
     Dates: start: 20120711
  5. BACTRIM [Suspect]
     Dosage: 800 mg, qd
     Dates: start: 20120713
  6. CERNEVIT [Suspect]
     Dosage: UNK
     Route: 042
     Dates: start: 20120710, end: 20120802
  7. DIFFU-K [Suspect]
     Dosage: UNK
     Route: 048
     Dates: start: 20120710
  8. KALETRA [Suspect]
     Indication: HIV INFECTION
     Dosage: UNK
     Dates: start: 201203
  9. LEDERFOLINE [Suspect]
     Dosage: UNK
     Route: 048
     Dates: start: 20120710
  10. LYSANXIA [Suspect]
     Dosage: 1 DF, qd
     Route: 048
     Dates: start: 20120710
  11. MYAMBUTOL [Suspect]
     Dosage: 1 DF, bid
     Dates: start: 20120711
  12. OLANZAPINE [Suspect]
     Dosage: 5 mg, UNK
     Route: 048
     Dates: start: 2012
  13. PERFALGAN [Suspect]
     Dosage: 500 mg, qd
     Route: 042
     Dates: start: 20120711
  14. ZECLAR [Suspect]
     Dosage: 500 mg, qd
     Route: 048
     Dates: start: 20120711
  15. TRUVADA [Suspect]
     Indication: HIV INFECTION
     Dosage: UNK
     Dates: start: 201203
  16. AMINO ACIDS\DEXTROSE\ELECTROLYTES\SOYBEAN OIL\VITAMINS [Suspect]
     Dosage: UNK
     Route: 051
     Dates: start: 20120710

REACTIONS (26)
  - Convulsion [Recovered/Resolved]
  - Coma [Recovered/Resolved]
  - Hepatitis cholestatic [None]
  - Hepatotoxicity [None]
  - General physical health deterioration [None]
  - Pyrexia [None]
  - Diarrhoea [None]
  - Malnutrition [None]
  - Anaemia [None]
  - Thrombocytopenia [None]
  - Mycobacterium test positive [None]
  - Cerebral atrophy [None]
  - Confusional state [None]
  - Agitation [None]
  - Apathy [None]
  - Bronchial obstruction [None]
  - Snoring [None]
  - Encephalopathy [None]
  - Lymphadenopathy [None]
  - Hepatosplenomegaly [None]
  - Spleen disorder [None]
  - Blood pressure decreased [None]
  - Oxygen saturation decreased [None]
  - Leukoencephalopathy [None]
  - Hyponatraemia [None]
  - Immune reconstitution inflammatory syndrome [None]
